FAERS Safety Report 22085036 (Version 2)
Quarter: 2023Q1

REPORT INFORMATION
  Report Type: Spontaneous
  Country: US (occurrence: US)
  Receive Date: 20230310
  Receipt Date: 20230322
  Transmission Date: 20230418
  Serious: Yes (Other)
  Sender: FDA-Public Use
  Company Number: US-BAXTER-2023BAX014766

PATIENT
  Age: 30 Year
  Sex: Male

DRUGS (8)
  1. MIDAZOLAM [Suspect]
     Active Substance: MIDAZOLAM
     Indication: Status epilepticus
     Dosage: FOR A PROLONG PERIOD
     Route: 065
  2. MIDAZOLAM [Suspect]
     Active Substance: MIDAZOLAM
     Indication: Myoclonic epilepsy
  3. PENTOBARBITAL [Suspect]
     Active Substance: PENTOBARBITAL
     Indication: Status epilepticus
     Dosage: FOR A PROLONG PERIOD
     Route: 065
  4. PENTOBARBITAL [Suspect]
     Active Substance: PENTOBARBITAL
     Indication: Myoclonic epilepsy
  5. PROPOFOL [Suspect]
     Active Substance: PROPOFOL
     Indication: Status epilepticus
     Dosage: FOR A PROLONG PERIOD
     Route: 065
  6. PROPOFOL [Suspect]
     Active Substance: PROPOFOL
     Indication: Myoclonic epilepsy
  7. KETAMINE [Suspect]
     Active Substance: KETAMINE
     Indication: Status epilepticus
     Dosage: FOR A PROLONG PERIOD
     Route: 065
  8. KETAMINE [Suspect]
     Active Substance: KETAMINE
     Indication: Myoclonic epilepsy

REACTIONS (1)
  - Ileus [Unknown]
